FAERS Safety Report 15535982 (Version 1)
Quarter: 2018Q4

REPORT INFORMATION
  Report Type: Spontaneous
  Country: SE (occurrence: SE)
  Receive Date: 20181022
  Receipt Date: 20181022
  Transmission Date: 20190205
  Serious: Yes (Other)
  Sender: FDA-Public Use
  Company Number: SE-ROCHE-2193268

PATIENT
  Age: 20 Year
  Sex: Female

DRUGS (3)
  1. DIAZEPAM. [Suspect]
     Active Substance: DIAZEPAM
     Indication: SUICIDAL IDEATION
     Route: 065
  2. NORTRIPTYLINE HYDROCHLORIDE. [Suspect]
     Active Substance: NORTRIPTYLINE HYDROCHLORIDE
     Indication: PRODUCT USED FOR UNKNOWN INDICATION
     Dosage: OVERDOSE 1.5 - 1.75 GM
     Route: 065
  3. NORTRIPTYLINE HYDROCHLORIDE. [Suspect]
     Active Substance: NORTRIPTYLINE HYDROCHLORIDE
     Indication: SUICIDAL IDEATION
     Route: 065

REACTIONS (7)
  - Coma [Recovering/Resolving]
  - Tachycardia [Unknown]
  - Maternal exposure during pregnancy [Unknown]
  - Electrocardiogram ST segment depression [Recovering/Resolving]
  - Blood pressure diastolic increased [Unknown]
  - Neurogenic bladder [Unknown]
  - Mydriasis [Unknown]
